FAERS Safety Report 23136674 (Version 1)
Quarter: 2023Q4

REPORT INFORMATION
  Report Type: Spontaneous
  Country: ES (occurrence: ES)
  Receive Date: 20231102
  Receipt Date: 20231102
  Transmission Date: 20240109
  Serious: Yes (Death, Other)
  Sender: FDA-Public Use
  Company Number: ES-VALIDUS PHARMACEUTICALS LLC-ES-VDP-2021-001295

PATIENT

DRUGS (5)
  1. FUROSEMIDE [Suspect]
     Active Substance: FUROSEMIDE
     Indication: Polyuria
     Dosage: UNK, THE RATE OF FUROSEMIDE LPC WAS VARYING THROUGHOUT THE DAYS, RECEIVING THE FOLLOWING DOSE OF FUR
     Route: 042
     Dates: start: 20200328, end: 20200331
  2. LOPINAVIR\RITONAVIR [Suspect]
     Active Substance: LOPINAVIR\RITONAVIR
     Indication: COVID-19
     Dosage: 400 MG, Q12H, 400 MG EVERY 12 H
     Route: 048
     Dates: start: 20200323, end: 20200403
  3. HYDROXYCHLOROQUINE SULFATE [Suspect]
     Active Substance: HYDROXYCHLOROQUINE SULFATE
     Indication: COVID-19
     Dosage: 400 MG EVERY 12 H 1ST DAY, THEN 200 MG EVERY 12 H
     Route: 048
     Dates: start: 20200323, end: 20200401
  4. HYDROXYCHLOROQUINE SULFATE [Suspect]
     Active Substance: HYDROXYCHLOROQUINE SULFATE
     Dosage: 200 MG, BID
     Route: 048
  5. TOCILIZUMAB [Suspect]
     Active Substance: TOCILIZUMAB
     Indication: COVID-19
     Dosage: 600 MG, TOTAL
     Route: 042
     Dates: start: 20200324, end: 20200325

REACTIONS (3)
  - Pancreatitis acute [Fatal]
  - Acute kidney injury [Unknown]
  - Drug interaction [Unknown]

NARRATIVE: CASE EVENT DATE: 20200401
